FAERS Safety Report 10076000 (Version 2)
Quarter: 2014Q2

REPORT INFORMATION
  Report Type: Spontaneous
  Country: US (occurrence: None)
  Receive Date: 20140410
  Receipt Date: 20140414
  Transmission Date: 20141212
  Serious: Yes (Other)
  Sender: FDA-Public Use
  Company Number: SYM-2014-19379

PATIENT
  Age: 30 Year
  Sex: Male

DRUGS (1)
  1. BUPROPION  HYDROCHLORIDE [Suspect]
     Indication: ANXIETY
     Route: 048
     Dates: start: 201108

REACTIONS (12)
  - Generalised tonic-clonic seizure [None]
  - Tremor [None]
  - Muscle spasticity [None]
  - Balance disorder [None]
  - Abnormal dreams [None]
  - Disturbance in attention [None]
  - Brain injury [None]
  - Aggression [None]
  - Suicidal ideation [None]
  - Panic reaction [None]
  - Speech disorder [None]
  - Confusional state [None]
